FAERS Safety Report 6024730-3 (Version None)
Quarter: 2008Q4

REPORT INFORMATION
  Report Type: 
  Country: None (occurrence: None)
  Receive Date: 20081230
  Receipt Date: 20081230
  Transmission Date: 20090506
  Serious: No
  Sender: FDA-Public Use
  Company Number: None

PATIENT
  Sex: Male
  Weight: 74.8435 kg

DRUGS (1)
  1. CREST PRO-HEALTH CETYLPYRIDINIUM CHLORIDE 0.07% PROCTER + GAMBLE [Suspect]
     Indication: DENTAL CARE
     Dosage: 30 ML TWICE DAILY DENTAL
     Route: 004
     Dates: start: 20080910, end: 20081010

REACTIONS (1)
  - TOOTH DISCOLOURATION [None]
